FAERS Safety Report 6265058-6 (Version None)
Quarter: 2009Q3

REPORT INFORMATION
  Report Type: 
  Country: None (occurrence: None)
  Receive Date: 20090713
  Receipt Date: 20090629
  Transmission Date: 20100115
  Serious: Yes (Other)
  Sender: FDA-Public Use
  Company Number: US-PFIZER INC-2009234056

PATIENT
  Sex: Male

DRUGS (5)
  1. DETROL [Suspect]
     Indication: BLADDER SPASM
     Dosage: 4 MG, 2X/DAY
     Route: 048
     Dates: start: 20070708
  2. NEXIUM [Concomitant]
     Indication: GASTROOESOPHAGEAL REFLUX DISEASE
     Dosage: UNK
     Route: 048
  3. ACETYLSALICYLIC ACID [Concomitant]
     Dosage: UNK
     Route: 048
     Dates: end: 20090621
  4. METOPROLOL [Concomitant]
     Indication: HYPERTENSION
     Dosage: 50 MG, 1X/DAY
     Route: 048
  5. AMLODIPINE BESYLATE/VALSARTAN [Concomitant]
     Indication: HYPERTENSION
     Dosage: 5/320 ONCE DAILY
     Route: 048

REACTIONS (2)
  - BLADDER SPASM [None]
  - CATHETER PLACEMENT [None]
